FAERS Safety Report 21492042 (Version 2)
Quarter: 2022Q4

REPORT INFORMATION
  Report Type: Spontaneous
  Country: JP (occurrence: JP)
  Receive Date: 20221021
  Receipt Date: 20221129
  Transmission Date: 20230112
  Serious: Yes (Hospitalization, Other)
  Sender: FDA-Public Use
  Company Number: JP-GLAXOSMITHKLINE-JP2022JPN129452

PATIENT

DRUGS (14)
  1. LAMICTAL [Suspect]
     Active Substance: LAMOTRIGINE
     Indication: Status epilepticus
     Dosage: 50 MG, BID
     Route: 048
     Dates: start: 20220524
  2. LAMICTAL [Suspect]
     Active Substance: LAMOTRIGINE
     Dosage: 3 DF, BID
     Route: 048
  3. LAMICTAL [Suspect]
     Active Substance: LAMOTRIGINE
     Dosage: 50 MG, BID
     Route: 048
     Dates: end: 20220707
  4. AMARYL TABLETS [Concomitant]
     Dosage: UNK
     Route: 048
     Dates: start: 20220616
  5. EDOXABAN TOSYLATE [Concomitant]
     Active Substance: EDOXABAN TOSYLATE
     Dosage: 30 MG, QD
     Route: 048
     Dates: start: 20220602, end: 20220707
  6. MAGNESIUM OXIDE [Concomitant]
     Active Substance: MAGNESIUM OXIDE
     Dosage: 250 MG, TID
     Route: 048
     Dates: start: 20220520, end: 20220707
  7. YOKUKANSAN EXTRACT GRANULES [Concomitant]
     Dosage: UNK
     Route: 048
     Dates: start: 20220513
  8. JANUVIA TABLET (SITAGLIPTIN PHOSPHATE HYDRATE) [Concomitant]
     Dosage: UNK
     Route: 048
     Dates: start: 20220507
  9. METGLUCO TABLETS [Concomitant]
     Dosage: UNK
     Route: 048
     Dates: start: 20220502
  10. PREDNISOLONE [Concomitant]
     Active Substance: PREDNISOLONE
     Indication: Encephalitis autoimmune
     Dosage: 10 MG, QD
     Route: 048
     Dates: start: 20220417
  11. PREDNISOLONE [Concomitant]
     Active Substance: PREDNISOLONE
     Dosage: 8 MG
     Route: 048
     Dates: end: 20220707
  12. HERBALS [Concomitant]
     Active Substance: HERBALS
     Dosage: 2.5 G, TID
     Route: 048
     Dates: start: 20220411, end: 20220707
  13. E KEPPRA TABLETS [Concomitant]
     Dosage: UNK
     Route: 048
     Dates: start: 20220407
  14. FYCOMPA [Concomitant]
     Active Substance: PERAMPANEL
     Dosage: 2 MG, QD
     Route: 048
     Dates: start: 20220705, end: 20220707

REACTIONS (19)
  - Toxic epidermal necrolysis [Recovering/Resolving]
  - Stevens-Johnson syndrome [Unknown]
  - Pruritus [Recovered/Resolved]
  - Conjunctival hyperaemia [Recovered/Resolved]
  - Oral mucosa erosion [Recovered/Resolved]
  - Blister [Recovered/Resolved]
  - Skin erosion [Recovered/Resolved]
  - Pyrexia [Recovered/Resolved]
  - Erythema [Recovered/Resolved]
  - Rash [Unknown]
  - Drug eruption [Unknown]
  - Eyelid oedema [Unknown]
  - Erythema of eyelid [Unknown]
  - Eye discharge [Unknown]
  - Lip erosion [Unknown]
  - Scab [Unknown]
  - Rash maculo-papular [Unknown]
  - Ocular hyperaemia [Unknown]
  - Medication error [Unknown]

NARRATIVE: CASE EVENT DATE: 20220704
